FAERS Safety Report 5454013-1 (Version None)
Quarter: 2007Q3

REPORT INFORMATION
  Report Type: 
  Country: None (occurrence: None)
  Receive Date: 20070917
  Receipt Date: 20070228
  Transmission Date: 20080115
  Serious: Yes (Other)
  Sender: FDA-Public Use
  Company Number: US-ASTRAZENECA-2006UW05090

PATIENT
  Age: 38 Year
  Sex: Female
  Weight: 43.2 kg

DRUGS (5)
  1. SEROQUEL [Suspect]
     Indication: ANXIETY
     Dosage: 25 TO 200 MG
     Route: 048
     Dates: start: 20011001, end: 20050701
  2. SEROQUEL [Suspect]
     Indication: BIPOLAR DISORDER
     Dosage: 25 TO 200 MG
     Route: 048
     Dates: start: 20011001, end: 20050701
  3. SEROQUEL [Suspect]
     Indication: PANIC DISORDER
     Dosage: 25 TO 200 MG
     Route: 048
     Dates: start: 20011001, end: 20050701
  4. ABILIFY [Concomitant]
     Dates: start: 20050101, end: 20060101
  5. OLANZAPINE [Concomitant]
     Dates: start: 20060101

REACTIONS (2)
  - DIABETES MELLITUS [None]
  - PANCREATITIS [None]
